FAERS Safety Report 13611504 (Version 2)
Quarter: 2017Q2

REPORT INFORMATION
  Report Type: Spontaneous
  Country: US (occurrence: US)
  Receive Date: 20170605
  Receipt Date: 20170606
  Transmission Date: 20170830
  Serious: No
  Sender: FDA-Public Use
  Company Number: US-PFIZER INC-2017243604

PATIENT
  Sex: Female

DRUGS (2)
  1. ADVIL [Suspect]
     Active Substance: IBUPROFEN
     Indication: PAIN
     Dosage: 2 DF, 3X/DAY (TOOK 2 AT A TIME EACH DAY FOR A TOTAL OF 6)
  2. ADVIL [Suspect]
     Active Substance: IBUPROFEN
     Indication: FIBROMYALGIA

REACTIONS (5)
  - Drug ineffective [Unknown]
  - Condition aggravated [Unknown]
  - Product use in unapproved indication [Unknown]
  - Nausea [Unknown]
  - Product physical issue [Unknown]
